FAERS Safety Report 10297759 (Version 9)
Quarter: 2019Q4

REPORT INFORMATION
  Report Type: Spontaneous
  Country: US (occurrence: US)
  Receive Date: 20140711
  Receipt Date: 20191202
  Transmission Date: 20200122
  Serious: No
  Sender: FDA-Public Use
  Company Number: US-PFIZER INC-2014193331

PATIENT
  Age: 60 Year
  Sex: Female
  Weight: 104 kg

DRUGS (6)
  1. BACLOFEN. [Concomitant]
     Active Substance: BACLOFEN
     Dosage: 10 MG, 4X/DAY
  2. LYRICA [Suspect]
     Active Substance: PREGABALIN
     Indication: TRIGEMINAL NEURALGIA
     Dosage: 150 MG, UNK (FIVE TIMES A DAY)
     Route: 048
  3. LYRICA [Suspect]
     Active Substance: PREGABALIN
     Dosage: UNK
  4. LYRICA [Suspect]
     Active Substance: PREGABALIN
     Dosage: 750 MG, DAILY (150 MG TABLET FIVE TIMES A DAY)
  5. LYRICA [Suspect]
     Active Substance: PREGABALIN
     Dosage: 150 MG, UNK
  6. CARBAMAZEPINE. [Concomitant]
     Active Substance: CARBAMAZEPINE
     Dosage: 200 MG, UNK (6 TIMES A DAY)

REACTIONS (9)
  - Prescribed overdose [Unknown]
  - Somnolence [Recovered/Resolved]
  - Hyperhidrosis [Recovered/Resolved]
  - Withdrawal syndrome [Recovered/Resolved]
  - Drug resistance [Not Recovered/Not Resolved]
  - Erythema [Recovered/Resolved]
  - Pain [Not Recovered/Not Resolved]
  - Cold sweat [Recovered/Resolved]
  - Drug ineffective [Unknown]
